FAERS Safety Report 18983486 (Version 5)
Quarter: 2022Q1

REPORT INFORMATION
  Report Type: Spontaneous
  Country: IT (occurrence: IT)
  Receive Date: 20210309
  Receipt Date: 20220105
  Transmission Date: 20220423
  Serious: Yes (Hospitalization)
  Sender: FDA-Public Use
  Company Number: IT-ROCHE-2485057

PATIENT
  Age: 82 Year
  Sex: Female
  Weight: 95 kg

DRUGS (54)
  1. EXEMESTANE [Suspect]
     Active Substance: EXEMESTANE
     Indication: Breast cancer
     Dosage: 25 MILLIGRAM, ONCE A DAY
     Route: 048
     Dates: start: 20171207
  2. LETROZOLE [Suspect]
     Active Substance: LETROZOLE
     Indication: Breast cancer
     Dosage: 2.5 MILLIGRAM, ONCE A DAY (MOST RECENT DOSE PRIOR TO THE EVENT: 07/DEC/2017, 09/NOV/2018)
     Route: 048
     Dates: start: 20170616, end: 20171207
  3. LETROZOLE [Suspect]
     Active Substance: LETROZOLE
     Dosage: 2.5 MILLIGRAM, ONCE A DAY, MOST RECENT DOSE PRIOR TO THE EVENT:  24/MAY/2019
     Route: 048
     Dates: start: 20181109
  4. PACLITAXEL [Suspect]
     Active Substance: PACLITAXEL
     Indication: Breast cancer
     Dosage: 160 MILLIGRAM, EVERY WEEK (LAST DOSE 02/JUN/2017)
     Route: 042
     Dates: start: 20170407
  5. EPIRUBICIN [Suspect]
     Active Substance: EPIRUBICIN
     Indication: Breast cancer
     Dosage: 48 MILLIGRAM, EVERY WEEK (MOST RECENT DOSE : 08/AUG/2019)
     Route: 042
     Dates: start: 20190622
  6. PERTUZUMAB [Suspect]
     Active Substance: PERTUZUMAB
     Indication: Breast cancer
     Dosage: 840 MILLIGRAM, 3 WEEK (MOST RECENT DOSE PRIOR TO THE EVENT: 28/APR/2017)
     Route: 042
     Dates: start: 20170407, end: 20170407
  7. PERTUZUMAB [Suspect]
     Active Substance: PERTUZUMAB
     Dosage: 420 MILLIGRAM, 3 WEEK, MOST RECENT DOSE PRIOR TO THE EVENT: 10/MAY/2018
     Route: 042
     Dates: start: 20170408
  8. PERTUZUMAB [Suspect]
     Active Substance: PERTUZUMAB
     Dosage: 420 MILLIGRAM, MOST RECENT DOSE PRIOR TO THE EVENT: 10/MAY/2018
     Route: 042
     Dates: start: 20170428
  9. ADO-TRASTUZUMAB EMTANSINE [Suspect]
     Active Substance: ADO-TRASTUZUMAB EMTANSINE
     Indication: Breast cancer
     Dosage: 324 MILLIGRAM, 3 WEEK (LAST DOSE 29/AUG/2018)
     Route: 042
     Dates: start: 20180606
  10. TRASTUZUMAB [Suspect]
     Active Substance: TRASTUZUMAB
     Indication: Breast cancer
     Dosage: 760 MILLIGRAM (MOST RECENT DOSE PRIOR TO THE EVENT: 07/APR/2017, 20/NOV/2018)
     Route: 041
     Dates: start: 20170407, end: 20170407
  11. TRASTUZUMAB [Suspect]
     Active Substance: TRASTUZUMAB
     Dosage: 600 MILLIGRAM, MOST RECENT DOSE PRIOR TO THE EVENT: 14/FEB/2019
     Route: 041
     Dates: start: 20181120
  12. TRASTUZUMAB [Suspect]
     Active Substance: TRASTUZUMAB
     Dosage: 564 MILLIGRAM, 3 WEEK
     Route: 041
     Dates: start: 20170428, end: 20170519
  13. TRASTUZUMAB [Suspect]
     Active Substance: TRASTUZUMAB
     Dosage: 564 MILLIGRAM, 3 WEEK
     Route: 041
     Dates: start: 20170519, end: 20180510
  14. TRASTUZUMAB [Suspect]
     Active Substance: TRASTUZUMAB
     Dosage: 528 MILLIGRAM 3 WEEK
     Route: 041
     Dates: start: 20190307, end: 20190509
  15. ALLOPURINOL [Concomitant]
     Active Substance: ALLOPURINOL
     Indication: Product used for unknown indication
     Dosage: 300 MILLIGRAM, ONGOING = NOT CHECKED
     Route: 048
  16. ALPRAZOLAM [Concomitant]
     Active Substance: ALPRAZOLAM
     Indication: Anxiety
     Dosage: 0.13 MICROGRAM, 3 TIMES A DAY (ONGOING = NOT CHECKED)
     Route: 048
     Dates: start: 20190530
  17. BISOPROLOL FUMARATE [Concomitant]
     Active Substance: BISOPROLOL FUMARATE
     Indication: Pain
     Dosage: UNK (ONGOING = NOT CHECKED)
     Route: 065
     Dates: start: 20190902
  18. DEXAMETHASONE [Concomitant]
     Active Substance: DEXAMETHASONE
     Indication: Product used for unknown indication
     Dosage: UNK (ONGOING = NOT CHECKED) 3 WEEK
     Route: 042
     Dates: start: 20170407, end: 20190808
  19. DEXAMETHASONE [Concomitant]
     Active Substance: DEXAMETHASONE
     Dosage: 8 MILLIGRAM
     Route: 042
     Dates: start: 20171116, end: 20171116
  20. DULOXETINE [Concomitant]
     Active Substance: DULOXETINE
     Indication: Product used for unknown indication
     Dosage: 12.5 MILLIGRAM, ONCE A DAY
     Route: 048
  21. ENOXAPARIN [Concomitant]
     Active Substance: ENOXAPARIN
     Indication: Product used for unknown indication
     Dosage: UNK (ONGOING = NOT CHECKED)
     Route: 065
     Dates: start: 20190613
  22. FLUCONAZOLE [Concomitant]
     Active Substance: FLUCONAZOLE
     Indication: Pain
     Dosage: UNK (ONGOING = NOT CHECKED)
     Route: 065
     Dates: start: 20190902
  23. HYDROCHLOROTHIAZIDE [Concomitant]
     Active Substance: HYDROCHLOROTHIAZIDE
     Indication: Product used for unknown indication
     Dosage: 12.5 MILLIGRAM (ONGOING = NOT CHECKED)
     Route: 048
  24. MORPHINE SULFATE [Concomitant]
     Active Substance: MORPHINE SULFATE
     Indication: Pain
     Dosage: 10 MILLIGRAM, ONGOING = NOT CHECKED
     Route: 048
     Dates: start: 20190608
  25. NORVASC [Concomitant]
     Active Substance: AMLODIPINE BESYLATE
     Indication: Product used for unknown indication
     Dosage: 5 MILLIGRAM
     Route: 048
     Dates: end: 20190913
  26. OXYCODONE [Concomitant]
     Active Substance: OXYCODONE
     Indication: Pain
     Dosage: 5 MILLIGRAM, TWO TIMES A DAY, ONGOING = NOT CHECKED
     Route: 048
     Dates: start: 20190608
  27. PREDNISONE [Concomitant]
     Active Substance: PREDNISONE
     Indication: Asthenia
     Dosage: 25 MILLIGRAM, ONCE A DAY (ONGOING = NOT CHECKED)
     Route: 048
     Dates: start: 20190530
  28. PREDNISONE [Concomitant]
     Active Substance: PREDNISONE
     Dosage: 100 MILLIGRAM, ONCE A DAY
     Route: 048
     Dates: start: 20170406, end: 20170519
  29. ACETAMINOPHEN [Concomitant]
     Active Substance: ACETAMINOPHEN
     Indication: Back pain
     Dosage: ONGOING = NOT CHECKED
     Route: 065
     Dates: start: 20170825
  30. ACETAMINOPHEN [Concomitant]
     Active Substance: ACETAMINOPHEN
     Dosage: 500 MILLIGRAM, 3 WEEK
     Route: 048
     Dates: start: 20170407, end: 20180829
  31. RANITIDINE [Concomitant]
     Active Substance: RANITIDINE
     Indication: Product used for unknown indication
     Dosage: 150 MILLIGRAM, TWO TIMES A DAY
     Route: 048
     Dates: start: 20190530
  32. TELMISARTAN [Concomitant]
     Active Substance: TELMISARTAN
     Indication: Product used for unknown indication
     Dosage: 80 MILLIGRAM
     Route: 048
     Dates: end: 20190913
  33. PANTOPRAZOLE [Concomitant]
     Active Substance: PANTOPRAZOLE
     Indication: Gastritis
     Dosage: UNK
     Route: 042
     Dates: start: 20170530, end: 20170601
  34. PANTOPRAZOLE [Concomitant]
     Active Substance: PANTOPRAZOLE
     Dosage: 80 MILLIGRAM, ONCE A DAY
     Route: 048
     Dates: start: 20170606, end: 20190530
  35. TRANEXAMIC ACID [Concomitant]
     Active Substance: TRANEXAMIC ACID
     Indication: Upper gastrointestinal haemorrhage
     Dosage: 500 MILLIGRAM, 3 TIMES A DAY
     Route: 048
     Dates: start: 20170508, end: 20170515
  36. DIAZEPAM [Concomitant]
     Active Substance: DIAZEPAM
     Indication: Anxiety
     Dosage: 10 DROP
     Route: 048
     Dates: start: 20170513, end: 20170515
  37. DEXAMETHASONE\TOBRAMYCIN [Concomitant]
     Active Substance: DEXAMETHASONE\TOBRAMYCIN
     Indication: Conjunctivitis
     Dosage: 3 DROP, ONCE A DAY
     Route: 061
     Dates: start: 20170914, end: 20170919
  38. SUCRALFATE [Concomitant]
     Active Substance: SUCRALFATE
     Indication: Upper gastrointestinal haemorrhage
     Dosage: 20 GRAM, 3 TIMES A DAY
     Route: 048
     Dates: start: 20170508, end: 20170529
  39. METHYLPREDNISOLONE [Concomitant]
     Active Substance: METHYLPREDNISOLONE
     Indication: Arthralgia
     Dosage: 16 MILLIGRAM, ONCE A DAY
     Route: 048
     Dates: start: 20171116, end: 20171207
  40. LANSOPRAZOLE [Concomitant]
     Active Substance: LANSOPRAZOLE
     Indication: Upper gastrointestinal haemorrhage
     Dosage: 30 MILLIGRAM, ONCE A DAY
     Route: 048
     Dates: start: 20170513, end: 20170529
  41. OMEPRAZOLE [Concomitant]
     Active Substance: OMEPRAZOLE
     Indication: Upper gastrointestinal haemorrhage
     Dosage: 40 MILLIGRAM, TWO TIMES A DAY
     Route: 042
     Dates: start: 20170508, end: 20170513
  42. LOPERAMIDE [Concomitant]
     Active Substance: LOPERAMIDE
     Indication: Diarrhoea
     Dosage: 4 MILLIGRAM, ONCE A DAY
     Route: 048
     Dates: start: 20170504, end: 20170504
  43. LOPERAMIDE [Concomitant]
     Active Substance: LOPERAMIDE
     Dosage: 2 MILLIGRAM
     Route: 048
     Dates: start: 20170513, end: 20170526
  44. PLAVIX [Concomitant]
     Active Substance: CLOPIDOGREL BISULFATE
     Indication: Product used for unknown indication
     Dosage: 75 MILLIGRAM
     Route: 048
     Dates: start: 20170508
  45. ONDANSETRON [Concomitant]
     Active Substance: ONDANSETRON
     Indication: Nausea
     Dosage: 8 MILLIGRAM
     Route: 042
     Dates: start: 20190622, end: 20190704
  46. CERNEVIT [Concomitant]
     Active Substance: VITAMINS
     Indication: Product used for unknown indication
     Dosage: 100 MILLILITER
     Route: 042
     Dates: start: 20170821, end: 20170821
  47. ACETAMINOPHEN\CODEINE PHOSPHATE [Concomitant]
     Active Substance: ACETAMINOPHEN\CODEINE PHOSPHATE
     Indication: Arthralgia
     Dosage: 80 MILLIGRAM, ONCE A DAY
     Route: 048
     Dates: start: 20171116, end: 20171206
  48. SODIUM ALGINATE\SODIUM BICARBONATE [Concomitant]
     Active Substance: SODIUM ALGINATE\SODIUM BICARBONATE
     Indication: Gastritis
     Dosage: 767 MILLIGRAM, ONCE A DAY
     Route: 048
     Dates: start: 20170606, end: 20170616
  49. POTASSIUM [Concomitant]
     Active Substance: POTASSIUM
     Indication: Diarrhoea
     Dosage: 600 MILLIGRAM, TWO TIMES A DAY
     Route: 048
     Dates: start: 20190709, end: 20190712
  50. AMOXICILLIN [Concomitant]
     Active Substance: AMOXICILLIN
     Indication: Product used for unknown indication
     Dosage: 1 GRAM, 3 TIMES A DAY
     Route: 048
     Dates: start: 20190725, end: 20190801
  51. KCL [Concomitant]
     Active Substance: POTASSIUM CHLORIDE
     Indication: Product used for unknown indication
     Dosage: 600 MILLIGRAM, ONCE A DAY
     Route: 048
     Dates: start: 20170515, end: 20170526
  52. HYALURONIC ACID [Concomitant]
     Active Substance: HYALURONIC ACID
     Indication: Product used for unknown indication
     Dosage: UNK, ONCE A DAY
     Route: 061
     Dates: start: 20171005, end: 20171207
  53. CHLORPHENIRAMINE MALEATE [Concomitant]
     Active Substance: CHLORPHENIRAMINE MALEATE
     Indication: Product used for unknown indication
     Dosage: 10 MILLIGRAM, 3 WEEK
     Route: 030
     Dates: start: 20170407, end: 20190509
  54. ENOXAPARIN [Concomitant]
     Active Substance: ENOXAPARIN
     Indication: Product used for unknown indication
     Dosage: 4000 INTERNATIONAL UNIT, ONCE A DAY
     Route: 058
     Dates: start: 20170613, end: 20170913

REACTIONS (1)
  - Pain [Recovered/Resolved]

NARRATIVE: CASE EVENT DATE: 20190902
